FAERS Safety Report 8800809 (Version 2)
Quarter: 2012Q4

REPORT INFORMATION
  Report Type: Report from Study
  Country: JP (occurrence: JP)
  Receive Date: 20120921
  Receipt Date: 20121010
  Transmission Date: 20130627
  Serious: Yes (Hospitalization)
  Sender: FDA-Public Use
  Company Number: JP-B.I. PHARMACEUTICALS,INC./RIDGEFIELD-2012-BP-22689NB

PATIENT
  Age: 76 Year
  Sex: Male
  Weight: 61 kg

DRUGS (10)
  1. PRAZAXA [Suspect]
     Indication: CEREBROVASCULAR ACCIDENT PROPHYLAXIS
     Dosage: 220 mg
     Route: 048
     Dates: start: 20120426, end: 20120430
  2. PRAZAXA [Suspect]
     Indication: ATRIAL FIBRILLATION
  3. ALLOPURINOL [Concomitant]
     Dosage: 100 mg
     Route: 048
     Dates: start: 20060425
  4. ARTIST [Concomitant]
     Indication: ATRIAL FIBRILLATION
     Dosage: 2.5 mg
     Route: 048
     Dates: start: 20060302
  5. LASIX [Concomitant]
     Dosage: 20 mg
     Route: 048
     Dates: start: 20060302
  6. ALDACTONE A [Concomitant]
     Dosage: 25 mg
     Route: 048
     Dates: start: 20060302
  7. AMARYL [Concomitant]
     Dosage: 1 mg
     Route: 048
     Dates: start: 20091203, end: 20120627
  8. SEIBULE [Concomitant]
     Dosage: 150 mg
     Route: 048
     Dates: start: 20110704, end: 20120627
  9. OMEPRAL [Concomitant]
     Indication: PROPHYLAXIS
     Dosage: 10 mg
     Route: 048
     Dates: start: 20011215
  10. MAGLAX [Concomitant]
     Dosage: 990 mg
     Route: 048
     Dates: start: 20120426, end: 20120506

REACTIONS (2)
  - Colon cancer [Recovered/Resolved]
  - Lower gastrointestinal haemorrhage [Recovered/Resolved]
